FAERS Safety Report 13307296 (Version 1)
Quarter: 2017Q1

REPORT INFORMATION
  Report Type: Spontaneous
  Country: US (occurrence: US)
  Receive Date: 20170308
  Receipt Date: 20170308
  Transmission Date: 20170428
  Serious: Yes (Hospitalization, Other)
  Sender: FDA-Public Use
  Company Number: US-MYLANLABS-2017M1014068

PATIENT

DRUGS (3)
  1. BUPROPION. [Suspect]
     Active Substance: BUPROPION
     Indication: PARKINSON^S DISEASE
     Dosage: 100 TWICE A DAY FOR YEARS
     Route: 042
  2. DIAZEPAM. [Suspect]
     Active Substance: DIAZEPAM
     Indication: PARKINSON^S DISEASE
     Dosage: 5MG TWICE A DAY
     Route: 048
  3. HALOPERIDOL. [Suspect]
     Active Substance: HALOPERIDOL
     Indication: PARKINSON^S DISEASE
     Dosage: 2MG AT BEDTIME AND EVERY SIX HOURS AS NEEDED
     Route: 042

REACTIONS (2)
  - Condition aggravated [Unknown]
  - Neurodegenerative disorder [Unknown]
